FAERS Safety Report 13542213 (Version 1)
Quarter: 2017Q2

REPORT INFORMATION
  Report Type: Spontaneous
  Country: US (occurrence: US)
  Receive Date: 20170512
  Receipt Date: 20170512
  Transmission Date: 20170830
  Serious: Yes (Other)
  Sender: FDA-Public Use
  Company Number: US-ROCHE-759536

PATIENT
  Age: 64 Year
  Sex: Female
  Weight: 57 kg

DRUGS (2)
  1. AVASTIN [Suspect]
     Active Substance: BEVACIZUMAB
     Indication: BREAST CANCER METASTATIC
     Route: 042
     Dates: start: 20100326, end: 20101028
  2. ABRAXANE [Concomitant]
     Active Substance: PACLITAXEL
     Dosage: 3 WEEK ON , 1 WEEK OFF
     Route: 065

REACTIONS (1)
  - Nasal septum perforation [Recovering/Resolving]

NARRATIVE: CASE EVENT DATE: 20101012
